FAERS Safety Report 17399877 (Version 3)
Quarter: 2022Q3

REPORT INFORMATION
  Report Type: Spontaneous
  Country: DE (occurrence: DE)
  Receive Date: 20200211
  Receipt Date: 20220818
  Transmission Date: 20221027
  Serious: Yes (Other)
  Sender: FDA-Public Use
  Company Number: DE-SUN PHARMACEUTICAL INDUSTRIES LTD-2020R1-236178

PATIENT
  Age: 34 Year
  Sex: Female
  Weight: 95 kg

DRUGS (4)
  1. ASPIRIN [Suspect]
     Active Substance: ASPIRIN
     Indication: Cerebral venous sinus thrombosis
     Dosage: 500 MILLIGRAM, DAILY
     Route: 042
  2. ENOXAPARIN SODIUM [Suspect]
     Active Substance: ENOXAPARIN SODIUM
     Indication: Thrombosis prophylaxis
     Dosage: 80 MILLIGRAM, DAILY
     Route: 058
  3. INTEGRILIN [Suspect]
     Active Substance: EPTIFIBATIDE
     Indication: Cytotoxic oedema
     Dosage: 11.2 MG/HR
     Route: 042
  4. TICAGRELOR [Suspect]
     Active Substance: TICAGRELOR
     Indication: Cerebral venous sinus thrombosis
     Dosage: 180 MILLIGRAM, DAILY
     Route: 048

REACTIONS (4)
  - Condition aggravated [Recovering/Resolving]
  - Coma [Recovering/Resolving]
  - Exposure during pregnancy [Unknown]
  - Live birth [Unknown]
